FAERS Safety Report 7492756-9 (Version None)
Quarter: 2011Q2

REPORT INFORMATION
  Report Type: 
  Country: None (occurrence: None)
  Receive Date: 20110519
  Receipt Date: 20110502
  Transmission Date: 20111010
  Serious: Yes (Disabling, Other)
  Sender: FDA-Public Use
  Company Number: KR-AMGEN-US238998

PATIENT
  Age: 35 Year
  Sex: Female

DRUGS (15)
  1. CALCITRIOL [Concomitant]
  2. CARVEDILOL [Concomitant]
  3. RECORMON                           /00928301/ [Suspect]
     Dosage: UNK UNK, UNK
     Dates: start: 20051201, end: 20060401
  4. ARANESP [Suspect]
     Dosage: 20 A?G, QWK
  5. ENALAPRIL MALEATE [Concomitant]
  6. ARANESP [Suspect]
     Indication: ANAEMIA
     Dosage: 40 A?G, QWK
     Route: 058
     Dates: start: 20050601
  7. RECORMON                           /00928301/ [Suspect]
     Dosage: UNK UNK, UNK
     Dates: start: 20040501, end: 20050501
  8. CALCIUM CARBONATE [Concomitant]
  9. ULCERLMIN [Concomitant]
  10. ARANESP [Suspect]
     Dosage: 50 A?G, QWK
     Dates: start: 20060101
  11. ALUMINIUM HYDROXIDE GEL [Concomitant]
  12. FOLATE SODIUM [Concomitant]
  13. AMLODIPINE [Concomitant]
  14. PYRIDOXINE [Concomitant]
  15. THIAMINE [Concomitant]

REACTIONS (3)
  - ANTI-ERYTHROPOIETIN ANTIBODY POSITIVE [None]
  - THERAPEUTIC RESPONSE DECREASED [None]
  - HAEMOGLOBIN DECREASED [None]
